FAERS Safety Report 10167942 (Version 2)
Quarter: 2014Q2

REPORT INFORMATION
  Report Type: Spontaneous
  Country: US (occurrence: US)
  Receive Date: 20140512
  Receipt Date: 20140530
  Transmission Date: 20141212
  Serious: Yes (Hospitalization)
  Sender: FDA-Public Use
  Company Number: US-GLAXOSMITHKLINE-A1072301A

PATIENT
  Age: 57 Year
  Sex: Female

DRUGS (8)
  1. ADVAIR HFA [Suspect]
     Indication: CHRONIC OBSTRUCTIVE PULMONARY DISEASE
     Dosage: 1PUFF TWICE PER DAY
     Route: 055
     Dates: start: 1999
  2. VENTOLIN [Suspect]
     Indication: ASTHMA
     Dosage: 2PUFF AS REQUIRED
     Route: 055
     Dates: start: 1999
  3. DICYCLOMINE [Concomitant]
  4. BUPROPION [Concomitant]
  5. CLONAZEPAM [Concomitant]
  6. CYMBALTA [Concomitant]
  7. OXYCODONE IMMEDIATE RELEASE [Concomitant]
  8. MORPHINE EXTENDED RELIEF [Concomitant]

REACTIONS (4)
  - Sinusitis [Recovered/Resolved]
  - Pneumonia [Recovered/Resolved]
  - Bronchitis [Unknown]
  - Infection [Recovered/Resolved]
